FAERS Safety Report 21504815 (Version 2)
Quarter: 2022Q4

REPORT INFORMATION
  Report Type: Report from Study
  Country: US (occurrence: US)
  Receive Date: 20221025
  Receipt Date: 20221129
  Transmission Date: 20230113
  Serious: Yes (Hospitalization)
  Sender: FDA-Public Use
  Company Number: US-BRISTOL-MYERS SQUIBB COMPANY-2022-126163

PATIENT
  Age: 68 Year
  Sex: Female
  Weight: 55.30 kg

DRUGS (4)
  1. NIVOLUMAB [Suspect]
     Active Substance: NIVOLUMAB
     Indication: Ovarian cancer
     Dosage: THIS WAS THE ONLY DOSE THE PATIENT RECEIVED PRIOR TO ONSET OF THE EVENTS.
     Route: 042
     Dates: start: 20220223
  2. COM-701 [Suspect]
     Active Substance: COM-701
     Indication: Ovarian cancer
     Dosage: THIS WAS THE ONLY DOSE THE PATIENT RECEIVED PRIOR TO ONSET OF THE EVENTS.
     Route: 042
     Dates: start: 20220223
  3. OMEPRAZOLE [Concomitant]
     Active Substance: OMEPRAZOLE
     Indication: Product used for unknown indication
     Dosage: UNK
     Route: 065
  4. ONDANSETRON [Concomitant]
     Active Substance: ONDANSETRON
     Indication: Product used for unknown indication
     Dosage: UNK
     Route: 065

REACTIONS (2)
  - Pyrexia [Recovered/Resolved]
  - Abdominal pain upper [Recovered/Resolved]

NARRATIVE: CASE EVENT DATE: 20220224
